FAERS Safety Report 6747881-4 (Version None)
Quarter: 2010Q2

REPORT INFORMATION
  Report Type: 
  Country: None (occurrence: None)
  Receive Date: 20100528
  Receipt Date: 20100519
  Transmission Date: 20101027
  Serious: Yes (Hospitalization)
  Sender: FDA-Public Use
  Company Number: FR-JNJFOC-20100508862

PATIENT
  Age: 46 Year
  Sex: Female

DRUGS (4)
  1. REMICADE [Suspect]
     Indication: RHEUMATOID ARTHRITIS
     Route: 042
  2. REMICADE [Suspect]
     Route: 042
  3. REMICADE [Suspect]
     Dosage: 4TH INFUSION
     Route: 042
  4. REMICADE [Suspect]
     Route: 042

REACTIONS (4)
  - OEDEMA PERIPHERAL [None]
  - POLYARTHRITIS [None]
  - PYREXIA [None]
  - RASH [None]
